FAERS Safety Report 7685633-1 (Version None)
Quarter: 2011Q3

REPORT INFORMATION
  Report Type: 
  Country: None (occurrence: None)
  Receive Date: 20110816
  Receipt Date: 20110804
  Transmission Date: 20111222
  Serious: Yes (Hospitalization)
  Sender: FDA-Public Use
  Company Number: JP-JNJFOC-20110802450

PATIENT
  Sex: Female

DRUGS (4)
  1. VENOGLOBULIN [Concomitant]
     Indication: SEPSIS
     Route: 041
     Dates: start: 20110603, end: 20110605
  2. CLINDAMYCIN [Concomitant]
     Indication: SEPSIS
     Route: 041
     Dates: start: 20110601, end: 20110609
  3. PENTCILLIN [Concomitant]
     Indication: SEPSIS
     Route: 041
     Dates: start: 20110601, end: 20110609
  4. DORIPENEM MONOHYDRATE [Suspect]
     Indication: SEPSIS
     Dosage: 0.25 G TWICE DAILY
     Route: 042
     Dates: start: 20110610, end: 20110618

REACTIONS (1)
  - PLATELET COUNT INCREASED [None]
